FAERS Safety Report 9750214 (Version 1)
Quarter: 2013Q4

REPORT INFORMATION
  Report Type: Spontaneous
  Country: US (occurrence: US)
  Receive Date: 20131212
  Receipt Date: 20131212
  Transmission Date: 20140711
  Serious: No
  Sender: FDA-Public Use
  Company Number: US-ENDO PHARMACEUTICALS INC.-BUTA20110007

PATIENT
  Sex: Female

DRUGS (3)
  1. BUTALBITAL/ACETAMINOPHEN/CAFFEINE TABLETS [Suspect]
     Indication: PAIN
     Route: 048
  2. CARISOPRODOL TABLETS 350MG [Suspect]
     Indication: PAIN
     Route: 048
  3. HYDROCODONE/ACETAMINOPHEN 10MG/650MG [Suspect]
     Indication: PAIN
     Dosage: 40/2600 MG
     Route: 048
     Dates: start: 20110824

REACTIONS (2)
  - Vomiting [Unknown]
  - Drug ineffective [Unknown]
